FAERS Safety Report 8144815-5 (Version None)
Quarter: 2012Q1

REPORT INFORMATION
  Report Type: 
  Country: None (occurrence: None)
  Receive Date: 20120217
  Receipt Date: 20120206
  Transmission Date: 20120608
  Serious: Yes (Hospitalization, Other)
  Sender: FDA-Public Use
  Company Number: JP-UCBSA-044287

PATIENT
  Age: 20 Year
  Sex: Female
  Weight: 47.8 kg

DRUGS (14)
  1. KEPPRA [Suspect]
     Route: 048
     Dates: start: 20101016, end: 20101021
  2. KEPPRA [Suspect]
     Route: 048
     Dates: start: 20101016, end: 20101021
  3. KEPPRA [Suspect]
     Route: 048
     Dates: start: 20100929, end: 20101015
  4. TEGRETOL [Concomitant]
     Indication: COMPLEX PARTIAL SEIZURES
     Route: 048
  5. DOGMATYL [Concomitant]
     Indication: SCHIZOPHRENIA
     Dosage: DAILY DOSE : 600 MG
     Route: 048
     Dates: start: 20080107
  6. KEPPRA [Suspect]
     Route: 048
     Dates: start: 20101022, end: 20110111
  7. KEPPRA [Suspect]
     Route: 048
     Dates: start: 20100929, end: 20101015
  8. TOPIRAMATE [Concomitant]
     Indication: COMPLEX PARTIAL SEIZURES
     Dosage: DAILY DOSE :200 MG
     Route: 048
     Dates: start: 20090629
  9. LAMICTAL [Concomitant]
     Indication: COMPLEX PARTIAL SEIZURES
     Dosage: DAILY DOSE : 250 MG
     Route: 048
     Dates: start: 20090318, end: 20100928
  10. RISPERDAL [Concomitant]
     Indication: SCHIZOPHRENIA
     Dosage: DAILY DOSE  : 1 MG
     Route: 048
     Dates: start: 20081006
  11. KEPPRA [Suspect]
     Indication: EPILEPSY
     Dosage: DAILY DOSE : 1000 MG
     Route: 048
     Dates: start: 20110112, end: 20110119
  12. KEPPRA [Suspect]
     Route: 048
     Dates: start: 20101022, end: 20110111
  13. MEILAX [Concomitant]
     Indication: NEUROSIS
     Dosage: DAILY DOSE : 1 MG
     Route: 048
     Dates: start: 20071127
  14. KEPPRA [Suspect]
     Indication: COMPLEX PARTIAL SEIZURES
     Dosage: DAILY DOSE : 1000 MG
     Route: 048
     Dates: start: 20110112, end: 20110119

REACTIONS (1)
  - SCHIZOPHRENIA [None]
